FAERS Safety Report 11245733 (Version 1)
Quarter: 2015Q3

REPORT INFORMATION
  Report Type: Spontaneous
  Country: DE (occurrence: DE)
  Receive Date: 20150707
  Receipt Date: 20150707
  Transmission Date: 20151125
  Serious: Yes (Other)
  Sender: FDA-Public Use
  Company Number: DE-ASTRAZENECA-2015SE64817

PATIENT
  Age: 74 Year
  Sex: Female
  Weight: 79 kg

DRUGS (3)
  1. RAMIPRIL. [Suspect]
     Active Substance: RAMIPRIL
     Route: 048
     Dates: start: 20150311
  2. TORASEMIDE [Suspect]
     Active Substance: TORSEMIDE
     Route: 048
     Dates: start: 20150309
  3. SEROQUEL [Suspect]
     Active Substance: QUETIAPINE FUMARATE
     Route: 048
     Dates: start: 20150308

REACTIONS (5)
  - Flatulence [Unknown]
  - Urinary hesitation [Recovered/Resolved]
  - Urinary retention [Unknown]
  - Micturition urgency [Unknown]
  - Faecaloma [Unknown]

NARRATIVE: CASE EVENT DATE: 20150316
